FAERS Safety Report 8809853 (Version 6)
Quarter: 2015Q4

REPORT INFORMATION
  Report Type: Report from Study
  Country: AR (occurrence: AR)
  Receive Date: 20120926
  Receipt Date: 20151016
  Transmission Date: 20160305
  Serious: Yes (Disabling)
  Sender: FDA-Public Use
  Company Number: AR-ROCHE-1083614

PATIENT
  Age: 71 Year
  Sex: Male

DRUGS (2)
  1. LUCENTIS [Suspect]
     Active Substance: RANIBIZUMAB
     Indication: OEDEMA
  2. LUCENTIS [Suspect]
     Active Substance: RANIBIZUMAB
     Indication: NEOVASCULAR AGE-RELATED MACULAR DEGENERATION
     Route: 050
     Dates: start: 201109

REACTIONS (7)
  - Macular oedema [Not Recovered/Not Resolved]
  - No therapeutic response [Unknown]
  - Cataract [Not Recovered/Not Resolved]
  - Vision blurred [Unknown]
  - Retinal exudates [Not Recovered/Not Resolved]
  - Eye haemorrhage [Not Recovered/Not Resolved]
  - Retinal scar [Unknown]

NARRATIVE: CASE EVENT DATE: 201110
